FAERS Safety Report 10342794 (Version 1)
Quarter: 2014Q3

REPORT INFORMATION
  Report Type: Spontaneous
  Country: ES (occurrence: ES)
  Receive Date: 20140725
  Receipt Date: 20140725
  Transmission Date: 20150326
  Serious: Yes (Death)
  Sender: FDA-Public Use
  Company Number: ES-ASTRAZENECA-2014SE53450

PATIENT
  Age: 73 Year
  Sex: Male

DRUGS (2)
  1. BICALUTAMIDE. [Suspect]
     Active Substance: BICALUTAMIDE
     Indication: PROSTATE CANCER
     Route: 048
  2. TRIPTORELIN [Concomitant]
     Active Substance: TRIPTORELIN

REACTIONS (1)
  - Acute hepatic failure [Fatal]
